FAERS Safety Report 24594751 (Version 1)
Quarter: 2024Q4

REPORT INFORMATION
  Report Type: Spontaneous
  Country: US (occurrence: None)
  Receive Date: 20241108
  Receipt Date: 20241108
  Transmission Date: 20250114
  Serious: Yes (Other)
  Sender: Public
  Company Number: None

PATIENT
  Age: 76 Year
  Sex: Female
  Weight: 72 kg

DRUGS (1)
  1. RYBELSUS [Suspect]
     Active Substance: SEMAGLUTIDE
     Indication: Diabetes mellitus
     Dosage: 1 AN- AS NECCESARY DAILY ORAL
     Route: 048
     Dates: start: 20241015, end: 20241108

REACTIONS (4)
  - Hypersomnia [None]
  - Asthenia [None]
  - Gait inability [None]
  - Ill-defined disorder [None]

NARRATIVE: CASE EVENT DATE: 20241108
